FAERS Safety Report 8918089 (Version 1)
Quarter: 2012Q4

REPORT INFORMATION
  Report Type: 
  Country: US (occurrence: US)
  Receive Date: 20121120
  Receipt Date: 20121120
  Transmission Date: 20130627
  Serious: Yes (Hospitalization)
  Sender: FDA-Public Use
  Company Number: US-GILEAD-2012-0064957

PATIENT
  Age: 60 Year
  Sex: Male

DRUGS (3)
  1. LETAIRIS [Suspect]
     Indication: COR PULMONALE CHRONIC
     Dosage: 5 mg, UNK
     Route: 048
     Dates: start: 20111222
  2. FLOLAN [Concomitant]
  3. ADCIRCA [Concomitant]

REACTIONS (1)
  - Dyspnoea [Unknown]
